FAERS Safety Report 10634783 (Version 4)
Quarter: 2015Q1

REPORT INFORMATION
  Report Type: Report from Study
  Country: US (occurrence: US)
  Receive Date: 20141205
  Receipt Date: 20150127
  Transmission Date: 20150720
  Serious: Yes (Other)
  Sender: FDA-Public Use
  Company Number: US-BAYER-2014-161024

PATIENT
  Age: 69 Year
  Sex: Male
  Weight: 49.89 kg

DRUGS (3)
  1. JANTOVEN [Concomitant]
     Active Substance: WARFARIN SODIUM
  2. STIVARGA [Suspect]
     Active Substance: REGORAFENIB
     Indication: COLON CANCER
     Dosage: 160 MG, DAILY (3 WEEKS ON , 1 WEEK OFF)
     Route: 048
     Dates: start: 201409
  3. STIVARGA [Suspect]
     Active Substance: REGORAFENIB
     Indication: COLON CANCER
     Dosage: 160 MG, DAILY (3 WEEKS ON , 1 WEEK OFF)
     Route: 048
     Dates: end: 20141229

REACTIONS (5)
  - Hypophagia [Not Recovered/Not Resolved]
  - Weight decreased [Not Recovered/Not Resolved]
  - Chest discomfort [None]
  - Hyperglycaemia [Unknown]
  - Diarrhoea [Not Recovered/Not Resolved]

NARRATIVE: CASE EVENT DATE: 20141024
